FAERS Safety Report 13744947 (Version 1)
Quarter: 2017Q3

REPORT INFORMATION
  Report Type: Spontaneous
  Country: US (occurrence: US)
  Receive Date: 20170712
  Receipt Date: 20170712
  Transmission Date: 20171127
  Serious: No
  Sender: FDA-Public Use
  Company Number: US-PFIZER INC-2017296736

PATIENT
  Sex: Female

DRUGS (2)
  1. XELJANZ XR [Suspect]
     Active Substance: TOFACITINIB CITRATE
     Dosage: 11 MG, UNK
  2. SULFASALAZINE. [Suspect]
     Active Substance: SULFASALAZINE
     Dosage: UNK

REACTIONS (11)
  - Vision blurred [Unknown]
  - Back pain [Unknown]
  - Myalgia [Unknown]
  - Pain [Recovering/Resolving]
  - Fatigue [Unknown]
  - Abdominal pain [Unknown]
  - Temperature intolerance [Unknown]
  - Arthralgia [Unknown]
  - Malaise [Unknown]
  - Pollakiuria [Unknown]
  - Asthenia [Unknown]
